FAERS Safety Report 5087163-2 (Version None)
Quarter: 2006Q3

REPORT INFORMATION
  Report Type: 
  Country: None (occurrence: None)
  Receive Date: 20060821
  Receipt Date: 20060807
  Transmission Date: 20061208
  Serious: Yes (Hospitalization)
  Sender: FDA-Public Use
  Company Number: 2006097039

PATIENT
  Age: 55 Year
  Sex: Female

DRUGS (3)
  1. SULFASALAZINE [Suspect]
     Indication: DRUG USE FOR UNKNOWN INDICATION
     Dosage: 1 GRAM (500 MG,EVERY DAY), ORAL
     Route: 048
     Dates: start: 20060707, end: 20060713
  2. LACTOBACILLUS ACIDOPHILUS [Concomitant]
  3. PINAVERIUM BROMIDE [Concomitant]

REACTIONS (6)
  - CYTOLYTIC HEPATITIS [None]
  - FIBRIN D DIMER INCREASED [None]
  - HYPERTHERMIA [None]
  - HYPOTENSION [None]
  - RASH PRURITIC [None]
  - THROMBOCYTOPENIA [None]
